FAERS Safety Report 8880202 (Version 2)
Quarter: 2012Q4

REPORT INFORMATION
  Report Type: 
  Country: CA (occurrence: CA)
  Receive Date: 20121031
  Receipt Date: 20121121
  Transmission Date: 20130627
  Serious: Yes (Disabling)
  Sender: FDA-Public Use
  Company Number: CA-ASTRAZENECA-2012SE76021

PATIENT
  Age: 48 Year
  Sex: Female

DRUGS (7)
  1. PULMICORT TURBUHALER [Suspect]
     Indication: BRONCHITIS
     Dosage: 200 MCG TWO INHALATION TWICE A DAY
     Route: 055
     Dates: start: 20120906
  2. PULMICORT TURBUHALER [Suspect]
     Indication: PNEUMONIA
     Dosage: 200 MCG TWO INHALATION TWICE A DAY
     Route: 055
     Dates: start: 20120906
  3. PULMICORT TURBUHALER [Suspect]
     Indication: BRONCHITIS
     Dosage: 800 MCG, 2 x 200 MCG
     Route: 055
  4. PULMICORT TURBUHALER [Suspect]
     Indication: PNEUMONIA
     Dosage: 800 MCG, 2 x 200 MCG
     Route: 055
  5. CEFTIN [Concomitant]
  6. AVELOX [Concomitant]
  7. BRICANYL [Concomitant]

REACTIONS (2)
  - Dyspnoea [Unknown]
  - Drug ineffective [Recovering/Resolving]
